FAERS Safety Report 7685599-4 (Version None)
Quarter: 2011Q3

REPORT INFORMATION
  Report Type: 
  Country: None (occurrence: None)
  Receive Date: 20110816
  Receipt Date: 20110811
  Transmission Date: 20111222
  Serious: Yes (Death)
  Sender: FDA-Public Use
  Company Number: IT-PFIZER INC-2011185935

PATIENT
  Age: 62 Year
  Sex: Female
  Weight: 50 kg

DRUGS (4)
  1. ETOPOSIDE [Suspect]
     Indication: ACUTE MYELOID LEUKAEMIA
     Dosage: UNK
     Route: 042
     Dates: start: 20070410, end: 20070416
  2. GEMTUZUMAB OZOGAMICIN [Suspect]
     Indication: ACUTE MYELOID LEUKAEMIA
     Dosage: 8.5 MG, 1X/DAY
     Route: 042
     Dates: start: 20070322, end: 20070322
  3. CYTARABINE [Suspect]
     Indication: ACUTE MYELOID LEUKAEMIA
     Route: 042
     Dates: start: 20070410, end: 20070416
  4. MITOXANTRONE [Suspect]
     Indication: ACUTE MYELOID LEUKAEMIA
     Route: 042
     Dates: start: 20070410, end: 20070416

REACTIONS (1)
  - SUDDEN DEATH [None]
